FAERS Safety Report 10504049 (Version 2)
Quarter: 2014Q4

REPORT INFORMATION
  Report Type: Spontaneous
  Country: US (occurrence: US)
  Receive Date: 20141008
  Receipt Date: 20141008
  Transmission Date: 20150528
  Serious: No
  Sender: FDA-Public Use
  Company Number: US-BEH-2013037588

PATIENT
  Sex: Male
  Weight: 78 kg

DRUGS (36)
  1. DEXTROSE. [Concomitant]
     Active Substance: DEXTROSE
  2. NORMAL SALINE [Concomitant]
     Active Substance: SODIUM CHLORIDE
  3. CLONAZEPAM. [Concomitant]
     Active Substance: CLONAZEPAM
  4. FLUNISOLIDE. [Concomitant]
     Active Substance: FLUNISOLIDE
  5. PATANOL [Concomitant]
     Active Substance: OLOPATADINE HYDROCHLORIDE
  6. ZYRTEC D ALLERGY AND CONGESTION [Concomitant]
     Active Substance: CETIRIZINE HYDROCHLORIDE\PSEUDOEPHEDRINE HYDROCHLORIDE
  7. LEVAQUIN [Concomitant]
     Active Substance: LEVOFLOXACIN
  8. DIPHENHYDRAMINE [Concomitant]
     Active Substance: DIPHENHYDRAMINE
  9. EPIPEN [Concomitant]
     Active Substance: EPINEPHRINE
  10. EFFEXOR [Concomitant]
     Active Substance: VENLAFAXINE HYDROCHLORIDE
  11. PRIVIGEN [Suspect]
     Active Substance: HUMAN IMMUNOGLOBULIN G
     Indication: IMMUNODEFICIENCY COMMON VARIABLE
     Route: 042
  12. PRIVIGEN [Suspect]
     Active Substance: HUMAN IMMUNOGLOBULIN G
     Route: 042
  13. ACETAMINOPHEN. [Concomitant]
     Active Substance: ACETAMINOPHEN
  14. PROPRANOLOL [Concomitant]
     Active Substance: PROPRANOLOL\PROPRANOLOL HYDROCHLORIDE
  15. SYNTHROID [Concomitant]
     Active Substance: LEVOTHYROXINE SODIUM
  16. TUSSIN [Concomitant]
     Active Substance: GUAIFENESIN
  17. PROAIR HFA [Concomitant]
     Active Substance: ALBUTEROL SULFATE
  18. AMITRIPTYLINE [Concomitant]
     Active Substance: AMITRIPTYLINE
  19. OMNARIS [Concomitant]
     Active Substance: CICLESONIDE
  20. WELCHOL [Concomitant]
     Active Substance: COLESEVELAM HYDROCHLORIDE
  21. INDERAL [Concomitant]
     Active Substance: PROPRANOLOL HYDROCHLORIDE
  22. METHYLPREDNISOLONE. [Concomitant]
     Active Substance: METHYLPREDNISOLONE
  23. PRIVIGEN [Suspect]
     Active Substance: HUMAN IMMUNOGLOBULIN G
     Indication: HYPOTHYROIDISM
     Route: 042
  24. SINGULAIR [Concomitant]
     Active Substance: MONTELUKAST SODIUM
  25. PROTONIX [Concomitant]
     Active Substance: PANTOPRAZOLE SODIUM
  26. VITAMIN D [Concomitant]
     Active Substance: CHOLECALCIFEROL
  27. ASCORBIC ACID. [Concomitant]
     Active Substance: ASCORBIC ACID
  28. RESTASIS [Concomitant]
     Active Substance: CYCLOSPORINE
  29. ASPIRIN. [Concomitant]
     Active Substance: ASPIRIN
  30. CLARINEX [Concomitant]
     Active Substance: DESLORATADINE
  31. L-LYSINE [Concomitant]
     Active Substance: LYSINE
  32. MULTIVITAMIN [Concomitant]
     Active Substance: VITAMINS
  33. RELPAX [Concomitant]
     Active Substance: ELETRIPTAN HYDROBROMIDE
  34. TRANSDERM SCOP [Concomitant]
     Active Substance: SCOPOLAMINE
  35. ADVIL [Concomitant]
     Active Substance: IBUPROFEN
  36. LOVAZA [Concomitant]
     Active Substance: OMEGA-3-ACID ETHYL ESTERS

REACTIONS (4)
  - Upper respiratory tract infection [Unknown]
  - Skin infection [Unknown]
  - Eye infection [Unknown]
  - Sinusitis [Unknown]
